FAERS Safety Report 11231392 (Version 1)
Quarter: 2015Q3

REPORT INFORMATION
  Report Type: Report from Study
  Country: CA (occurrence: CA)
  Receive Date: 20150701
  Receipt Date: 20150701
  Transmission Date: 20151125
  Serious: Yes (Other)
  Sender: FDA-Public Use
  Company Number: CA-AMGEN-CANSL2015063200

PATIENT
  Age: 73 Year
  Sex: Female

DRUGS (1)
  1. PROLIA [Suspect]
     Active Substance: DENOSUMAB
     Indication: OSTEOPOROSIS POSTMENOPAUSAL
     Dosage: 60 MG, Q6MO
     Route: 058
     Dates: start: 20140501

REACTIONS (5)
  - Cold sweat [Unknown]
  - Breast cancer [Unknown]
  - Weight decreased [Unknown]
  - Dizziness [Unknown]
  - Influenza [Unknown]

NARRATIVE: CASE EVENT DATE: 201411
